FAERS Safety Report 5782818-6 (Version None)
Quarter: 2008Q2

REPORT INFORMATION
  Report Type: 
  Country: None (occurrence: None)
  Receive Date: 20080619
  Receipt Date: 20080619
  Transmission Date: 20081010
  Serious: Yes (Life-Threatening)
  Sender: FDA-Public Use
  Company Number: None

PATIENT
  Sex: Female
  Weight: 68.0396 kg

DRUGS (1)
  1. AMBIEN [Suspect]
     Indication: INSOMNIA
     Dosage: 1 HS DAILY ORAL
     Route: 048
     Dates: start: 20080514

REACTIONS (3)
  - CRYING [None]
  - DEPRESSION [None]
  - SUICIDAL IDEATION [None]
